FAERS Safety Report 4981166-1 (Version None)
Quarter: 2006Q2

REPORT INFORMATION
  Report Type: 
  Country: None (occurrence: None)
  Receive Date: 20060418
  Receipt Date: 20060406
  Transmission Date: 20061013
  Serious: Yes (Hospitalization)
  Sender: FDA-Public Use
  Company Number: A-US2005-10031

PATIENT
  Age: 64 Year
  Sex: Female

DRUGS (15)
  1. TRACLEER [Suspect]
     Indication: PULMONARY HYPERTENSION
     Dosage: 62.5 MG, BID, ORAL
     Route: 048
     Dates: start: 20050426
  2. COUMADIN [Concomitant]
  3. LIPITOR [Concomitant]
  4. FLUTICASONE PROPIONATE [Concomitant]
  5. SALMETEROL [Concomitant]
  6. ALBUTEROL [Concomitant]
  7. IMDUR [Concomitant]
  8. K-DUR 10 [Concomitant]
  9. LASIX [Concomitant]
  10. SPIRIVA [Concomitant]
  11. ASPIRIN [Concomitant]
  12. IRON [Concomitant]
  13. CYANOCOBALAMIN [Concomitant]
     Indication: PULMONARY HYPERTENSION
     Dosage: 62.5 MG, BID, ORAL
     Route: 048
     Dates: start: 20050426
  14. X [Concomitant]
  15. XX [Concomitant]

REACTIONS (2)
  - ANAEMIA [None]
  - PROTHROMBIN TIME PROLONGED [None]
